FAERS Safety Report 19740094 (Version 1)
Quarter: 2021Q3

REPORT INFORMATION
  Report Type: Report from Study
  Country: FR (occurrence: FR)
  Receive Date: 20210824
  Receipt Date: 20210824
  Transmission Date: 20211014
  Serious: Yes (Other)
  Sender: FDA-Public Use
  Company Number: FR-TAKEDA-2021TUS015558

PATIENT
  Sex: Female
  Weight: 119 kg

DRUGS (3)
  1. IXAZOMIB [Suspect]
     Active Substance: IXAZOMIB
     Indication: PLASMA CELL MYELOMA
     Dosage: 4 MILLIGRAM
     Route: 065
     Dates: start: 20180828
  2. REVLIMID [Suspect]
     Active Substance: LENALIDOMIDE
     Indication: PRODUCT USED FOR UNKNOWN INDICATION
     Dosage: 10 MILLIGRAM
     Route: 065
     Dates: start: 20200408
  3. IXAZOMIB [Suspect]
     Active Substance: IXAZOMIB
     Indication: LYMPHOMA
     Dosage: 3 MILLIGRAM
     Route: 065
     Dates: start: 20200408

REACTIONS (7)
  - Hypokalaemia [Recovered/Resolved]
  - Diarrhoea [Recovered/Resolved]
  - Spinal pain [Not Recovered/Not Resolved]
  - Dysaesthesia [Unknown]
  - Rash [Recovered/Resolved]
  - Oedema peripheral [Recovered/Resolved]
  - Asthenia [Not Recovered/Not Resolved]

NARRATIVE: CASE EVENT DATE: 20190310
